FAERS Safety Report 8623240-4 (Version None)
Quarter: 2012Q3

REPORT INFORMATION
  Report Type: 
  Country: None (occurrence: None)
  Receive Date: 20120827
  Receipt Date: 20120802
  Transmission Date: 20120928
  Serious: No
  Sender: FDA-Public Use
  Company Number: US-009507513-1208USA002472

PATIENT

DRUGS (6)
  1. PEGASYS [Suspect]
     Dosage: UNK
     Dates: start: 20120628, end: 20120802
  2. REBETOL [Suspect]
     Dosage: UNK
     Dates: start: 20120628, end: 20120802
  3. PEG-INTRON [Suspect]
     Indication: HEPATITIS C
     Dosage: UNK
     Dates: start: 20090101, end: 20100101
  4. REBETOL [Suspect]
     Indication: HEPATITIS C
     Dosage: UNK
     Dates: start: 20100101, end: 20110101
  5. PEGASYS [Suspect]
     Indication: HEPATITIS C
     Dosage: UNK
     Dates: start: 20100101, end: 20110101
  6. TELAPREVIR [Suspect]
     Indication: HEPATITIS C
     Dosage: UNK
     Dates: start: 20120628, end: 20120802

REACTIONS (3)
  - VIRAL LOAD INCREASED [None]
  - LIVER INJURY [None]
  - DRUG INEFFECTIVE [None]
